FAERS Safety Report 4802393-X (Version None)
Quarter: 2005Q4

REPORT INFORMATION
  Report Type: 
  Country: None (occurrence: None)
  Receive Date: 20051013
  Receipt Date: 20050906
  Transmission Date: 20060501
  Serious: Yes (Other)
  Sender: FDA-Public Use
  Company Number: 2005125606

PATIENT
  Age: 54 Year
  Sex: Female
  Weight: 60.782 kg

DRUGS (7)
  1. CELEBREX [Suspect]
     Indication: ARTHRALGIA
     Dosage: 200 MG (200 MG, 1 IN 1 D), ORAL
     Route: 048
  2. BENADRYL [Suspect]
     Indication: HYPERSENSITIVITY
     Dates: start: 20050101, end: 20050101
  3. AMIODARONE HCL [Suspect]
     Indication: ARRHYTHMIA
     Dates: start: 20050101, end: 20050101
  4. ALL OTHER THERAPEUTIC PRODUCTS (ALL OTHER THERAPEUTIC PRODUCTS) [Suspect]
     Indication: HYPERSENSITIVITY
     Dates: start: 20050101, end: 20050101
  5. VERAPAMIL [Suspect]
     Indication: ARRHYTHMIA
     Dates: start: 20050101
  6. PREVACID [Concomitant]
  7. PROTONIX (PANTORAZOLE) [Concomitant]

REACTIONS (9)
  - ARRHYTHMIA [None]
  - ARTHRITIS [None]
  - BLOOD CHOLESTEROL INCREASED [None]
  - CHEST PAIN [None]
  - CONSTIPATION [None]
  - DIABETES MELLITUS [None]
  - DRUG HYPERSENSITIVITY [None]
  - FALL [None]
  - INTERVERTEBRAL DISC DISORDER [None]
